FAERS Safety Report 6216857-8 (Version None)
Quarter: 2009Q2

REPORT INFORMATION
  Report Type: 
  Country: None (occurrence: None)
  Receive Date: 20090603
  Receipt Date: 20090603
  Transmission Date: 20091009
  Serious: Yes (Disabling, Other)
  Sender: FDA-Public Use
  Company Number: None

PATIENT
  Sex: Female
  Weight: 58.0604 kg

DRUGS (2)
  1. LEVAQUIN [Suspect]
     Indication: RESPIRATORY DISORDER
     Dosage: 500 MG 1 A DAY ORAL
     Route: 048
     Dates: start: 20080318, end: 20080325
  2. LEVAQUIN [Suspect]
     Indication: RESPIRATORY DISORDER
     Dosage: 500 MG 1 A DAY ORAL
     Route: 048
     Dates: start: 20080327

REACTIONS (5)
  - ARTHRALGIA [None]
  - CARTILAGE INJURY [None]
  - DRUG INEFFECTIVE [None]
  - TENDON RUPTURE [None]
  - TENDONITIS [None]
